FAERS Safety Report 5479061-7 (Version None)
Quarter: 2007Q4

REPORT INFORMATION
  Report Type: 
  Country: None (occurrence: None)
  Receive Date: 20071006
  Receipt Date: 20070925
  Transmission Date: 20080405
  Serious: Yes (Hospitalization)
  Sender: FDA-Public Use
  Company Number: FR-PFIZER INC-2007081228

PATIENT
  Sex: Male

DRUGS (1)
  1. GENOTONORM [Suspect]
     Indication: PRADER-WILLI SYNDROME

REACTIONS (2)
  - OBSTRUCTIVE AIRWAYS DISORDER [None]
  - SLEEP APNOEA SYNDROME [None]
